FAERS Safety Report 14270132 (Version 2)
Quarter: 2017Q4

REPORT INFORMATION
  Report Type: Spontaneous
  Country: AU (occurrence: AU)
  Receive Date: 20171211
  Receipt Date: 20171219
  Transmission Date: 20180321
  Serious: Yes (Other)
  Sender: FDA-Public Use
  Company Number: AU-PFIZER INC-2017411258

PATIENT
  Age: 9 Year
  Sex: Female
  Weight: 32 kg

DRUGS (3)
  1. PREDNISOLONE. [Concomitant]
     Active Substance: PREDNISOLONE
     Dosage: 15 MG, DAILY
     Route: 048
  2. PIROXICAM. [Concomitant]
     Active Substance: PIROXICAM
     Dosage: 10 MG, DAILY
     Route: 048
  3. METHOTREXATE. [Suspect]
     Active Substance: METHOTREXATE
     Indication: JUVENILE IDIOPATHIC ARTHRITIS
     Dosage: 15 MG, WEEKLY
     Route: 048
     Dates: start: 201601

REACTIONS (7)
  - Drug ineffective for unapproved indication [Unknown]
  - Hypermobility syndrome [Unknown]
  - Arthropathy [Unknown]
  - Joint dislocation [Unknown]
  - Joint injury [Unknown]
  - Joint instability [Unknown]
  - Humerus fracture [Unknown]
